FAERS Safety Report 7814530-3 (Version None)
Quarter: 2011Q4

REPORT INFORMATION
  Report Type: 
  Country: None (occurrence: None)
  Receive Date: 20111014
  Receipt Date: 20111014
  Transmission Date: 20120403
  Serious: Yes (Hospitalization)
  Sender: FDA-Public Use
  Company Number: PHHO2008US14257

PATIENT
  Sex: Female
  Weight: 57 kg

DRUGS (5)
  1. AZELASTINE HCL [Concomitant]
  2. HYDROCHLOROTHIAZIDE [Concomitant]
  3. GILENYA [Suspect]
     Indication: MULTIPLE SCLEROSIS
     Dosage: 0.5 MG, UNK
     Route: 048
     Dates: start: 20071113, end: 20081119
  4. ACTONEL [Concomitant]
  5. ALBUTEROL [Concomitant]

REACTIONS (9)
  - ABDOMINAL PAIN LOWER [None]
  - DECREASED APPETITE [None]
  - APPENDICITIS [None]
  - APPENDICECTOMY [None]
  - PELVIC FLUID COLLECTION [None]
  - BACK PAIN [None]
  - PYREXIA [None]
  - ABDOMINAL TENDERNESS [None]
  - LYMPHOCYTE COUNT DECREASED [None]
